APPROVED DRUG PRODUCT: FLUDROCORTISONE ACETATE
Active Ingredient: FLUDROCORTISONE ACETATE
Strength: 0.1MG
Dosage Form/Route: TABLET;ORAL
Application: A216013 | Product #001
Applicant: CHARTWELL RX SCIENCES LLC
Approved: Oct 27, 2022 | RLD: No | RS: No | Type: DISCN